FAERS Safety Report 9304900 (Version 1)
Quarter: 2013Q2

REPORT INFORMATION
  Report Type: Spontaneous
  Country: US (occurrence: US)
  Receive Date: 20130523
  Receipt Date: 20130523
  Transmission Date: 20140414
  Serious: Yes (Other)
  Sender: FDA-Public Use
  Company Number: US-PAR PHARMACEUTICAL, INC-2013SCPR005045

PATIENT
  Sex: 0

DRUGS (6)
  1. CHOLESTYRAMINE [Suspect]
     Indication: DIARRHOEA
     Dosage: 4 G, TWICE DAILY
     Route: 048
     Dates: start: 201205, end: 201301
  2. CHOLESTYRAMINE [Suspect]
     Dosage: UNK, UNKNOWN
     Route: 065
     Dates: start: 201302
  3. PROPRANOLOL HCL [Suspect]
     Indication: ESSENTIAL TREMOR
     Dosage: 60 MG, TWICE DAILY
     Route: 048
     Dates: start: 2008
  4. PRIMIDONE [Concomitant]
     Indication: ESSENTIAL TREMOR
     Dosage: 250 MG, ONCE DAILY
     Route: 048
     Dates: start: 2008
  5. GABAPENTIN [Concomitant]
     Indication: ESSENTIAL TREMOR
     Dosage: 600 MG, THRICE DAILY
     Route: 048
     Dates: start: 2008
  6. LISINOPRIL [Concomitant]
     Indication: HYPERTENSION
     Dosage: 10 MG, ONCE DAILY
     Route: 048
     Dates: start: 2008

REACTIONS (2)
  - Cutaneous lupus erythematosus [Not Recovered/Not Resolved]
  - Rash [Not Recovered/Not Resolved]
